FAERS Safety Report 4498372-5 (Version None)
Quarter: 2004Q4

REPORT INFORMATION
  Report Type: 
  Country: None (occurrence: None)
  Receive Date: 20041105
  Receipt Date: 20041102
  Transmission Date: 20050328
  Serious: Yes (Hospitalization)
  Sender: FDA-Public Use
  Company Number: FRWYE096307OCT04

PATIENT
  Age: 60 Year
  Sex: Male

DRUGS (3)
  1. RAPAMUNE [Suspect]
     Indication: PROPHYLAXIS AGAINST TRANSPLANT REJECTION
     Dosage: 4 MG 1X PER 1 DAY
     Route: 048
     Dates: start: 20031021
  2. CELLCEPT [Concomitant]
  3. PREDNISOLONE [Concomitant]

REACTIONS (2)
  - IMPAIRED HEALING [None]
  - TOE AMPUTATION [None]
